FAERS Safety Report 8408216-4 (Version None)
Quarter: 2012Q2

REPORT INFORMATION
  Report Type: 
  Country: None (occurrence: None)
  Receive Date: 20120604
  Receipt Date: 20120524
  Transmission Date: 20120825
  Serious: Yes (Other)
  Sender: FDA-Public Use
  Company Number: US-ELI_LILLY_AND_COMPANY-US201205009455

PATIENT
  Sex: Female

DRUGS (1)
  1. FORTEO [Suspect]
     Dosage: 20 UG, QD
     Route: 058
     Dates: start: 20111001

REACTIONS (6)
  - CARDIAC VALVE DISEASE [None]
  - SYNCOPE [None]
  - TACHYCARDIA [None]
  - CHEST PAIN [None]
  - HYPOTENSION [None]
  - DIZZINESS [None]
